FAERS Safety Report 20987012 (Version 3)
Quarter: 2022Q3

REPORT INFORMATION
  Report Type: Spontaneous
  Country: FR (occurrence: FR)
  Receive Date: 20220621
  Receipt Date: 20220912
  Transmission Date: 20221026
  Serious: Yes (Other)
  Sender: FDA-Public Use
  Company Number: FR-002147023-NVSC2022FR131852

PATIENT
  Age: 28 Year
  Sex: Female

DRUGS (3)
  1. PEGFILGRASTIM [Interacting]
     Active Substance: PEGFILGRASTIM
     Indication: Adenocarcinoma
     Dosage: 6 MG
     Route: 065
  2. ETOPOSIDE [Suspect]
     Active Substance: ETOPOSIDE
     Indication: Adenocarcinoma
     Dosage: 100 MG/M2 (D1, D2, D3)
     Route: 065
  3. CISPLATIN [Interacting]
     Active Substance: CISPLATIN
     Indication: Adenocarcinoma
     Dosage: 100 MG/M2 (D1)
     Route: 065

REACTIONS (4)
  - Hyperleukocytosis [Unknown]
  - Disease progression [Unknown]
  - Extremity necrosis [Unknown]
  - Drug interaction [Unknown]
